FAERS Safety Report 16401733 (Version 3)
Quarter: 2019Q3

REPORT INFORMATION
  Report Type: Report from Study
  Country: None (occurrence: US)
  Receive Date: 20190606
  Receipt Date: 20190814
  Transmission Date: 20191004
  Serious: Yes (Other)
  Sender: FDA-Public Use
  Company Number: US-ABBVIE-19K-163-2681119-00

PATIENT
  Age: 45 Year
  Sex: Female

DRUGS (2)
  1. HUMIRA [Suspect]
     Active Substance: ADALIMUMAB
     Indication: PSORIATIC ARTHROPATHY
     Route: 058
  2. HUMIRA [Suspect]
     Active Substance: ADALIMUMAB
     Route: 058

REACTIONS (14)
  - Oesophageal ulcer [Unknown]
  - Arthralgia [Unknown]
  - Device dispensing error [Unknown]
  - Fall [Unknown]
  - Pharyngitis streptococcal [Unknown]
  - Pneumonia [Unknown]
  - Peptic ulcer [Unknown]
  - Peripheral swelling [Recovering/Resolving]
  - Retinal detachment [Recovering/Resolving]
  - Diabetic retinopathy [Not Recovered/Not Resolved]
  - Diverticulum [Unknown]
  - Back pain [Recovering/Resolving]
  - Diabetes mellitus [Unknown]
  - Cataract [Unknown]

NARRATIVE: CASE EVENT DATE: 200304
